FAERS Safety Report 9328237 (Version 1)
Quarter: 2013Q2

REPORT INFORMATION
  Report Type: Spontaneous
  Country: US (occurrence: US)
  Receive Date: 20130604
  Receipt Date: 20130604
  Transmission Date: 20140414
  Serious: No
  Sender: FDA-Public Use
  Company Number: US-SANOFI-AVENTIS-2012SA039270

PATIENT
  Age: 47 Year
  Sex: Female

DRUGS (4)
  1. LANTUS [Suspect]
     Indication: TYPE 2 DIABETES MELLITUS
     Dosage: DOSE:20 UNIT(S)
     Route: 058
     Dates: start: 2010
  2. LANTUS [Suspect]
     Indication: TYPE 2 DIABETES MELLITUS
     Dosage: DOSE:20 UNIT(S)
     Route: 058
     Dates: start: 2012
  3. SOLOSTAR [Suspect]
     Indication: TYPE 2 DIABETES MELLITUS
     Dates: start: 2010
  4. METFORMIN [Concomitant]

REACTIONS (5)
  - Sensation of heaviness [Recovering/Resolving]
  - Gait disturbance [Not Recovered/Not Resolved]
  - Muscular weakness [Recovering/Resolving]
  - Pain in extremity [Not Recovered/Not Resolved]
  - Dyspnoea [Not Recovered/Not Resolved]
